FAERS Safety Report 7561288-1 (Version None)
Quarter: 2011Q2

REPORT INFORMATION
  Report Type: 
  Country: None (occurrence: None)
  Receive Date: 20110621
  Receipt Date: 20100916
  Transmission Date: 20111010
  Serious: No
  Sender: FDA-Public Use
  Company Number: US-ASTRAZENECA-2010SE18968

PATIENT
  Sex: Male

DRUGS (2)
  1. PULMICORT [Suspect]
     Dosage: 1 VIAL TWICE PER DAY
     Route: 055
  2. PULMICORT [Suspect]
     Dosage: 1 VIAL THREE TIMES PER DAY
     Route: 055

REACTIONS (3)
  - NASOPHARYNGITIS [None]
  - INCORRECT DOSE ADMINISTERED [None]
  - DYSPNOEA [None]
